FAERS Safety Report 20016614 (Version 1)
Quarter: 2021Q4

REPORT INFORMATION
  Report Type: Spontaneous
  Country: US (occurrence: None)
  Receive Date: 20211104
  Receipt Date: 20211104
  Transmission Date: 20220303
  Serious: No
  Sender: FDA-Public Use
  Company Number: None

PATIENT
  Age: 61 Year
  Sex: Female

DRUGS (3)
  1. COSENTYX [Suspect]
     Active Substance: SECUKINUMAB
     Indication: Ankylosing spondylitis
     Dosage: FREQUENCY : WEEKLY;?
     Route: 058
     Dates: start: 202010
  2. COSENTYX [Suspect]
     Active Substance: SECUKINUMAB
     Indication: Osteoarthritis
  3. COSENTYX [Suspect]
     Active Substance: SECUKINUMAB
     Indication: Osteoarthritis

REACTIONS (1)
  - Ear infection [None]
